FAERS Safety Report 9651780 (Version 1)
Quarter: 2013Q4

REPORT INFORMATION
  Report Type: Spontaneous
  Country: FR (occurrence: FR)
  Receive Date: 20131029
  Receipt Date: 20131029
  Transmission Date: 20140711
  Serious: Yes (Hospitalization)
  Sender: FDA-Public Use
  Company Number: FR-SA-2013SA106947

PATIENT
  Age: 53 Year
  Sex: Male
  Weight: 72 kg

DRUGS (5)
  1. RIFADINE [Suspect]
     Indication: INFECTION
     Route: 048
     Dates: start: 20130629, end: 20130712
  2. OFLOCET [Concomitant]
     Indication: INFECTION
     Dosage: FORM:SCORED FILM COATED TABLET, STRENGTH: 200 MG
     Route: 048
     Dates: start: 20130620
  3. AUGMENTIN [Concomitant]
     Indication: INFECTION
     Dates: start: 20130604, end: 20130605
  4. TAZOCILLINE [Concomitant]
     Indication: INFECTION
     Route: 042
     Dates: start: 20130617
  5. GENTAMICIN [Concomitant]
     Indication: INFECTION
     Dates: start: 20130617, end: 20130620

REACTIONS (3)
  - Neutropenia [Recovered/Resolved]
  - Leukopenia [Recovered/Resolved]
  - Lymphopenia [Recovered/Resolved]
